FAERS Safety Report 4609926-7 (Version None)
Quarter: 2005Q1

REPORT INFORMATION
  Report Type: 
  Country: None (occurrence: None)
  Receive Date: 20050314
  Receipt Date: 20050314
  Transmission Date: 20050727
  Serious: Yes (Hospitalization)
  Sender: FDA-Public Use
  Company Number: None

PATIENT
  Age: 83 Year
  Sex: Male

DRUGS (5)
  1. WARFARIN [Suspect]
     Indication: ATRIAL FIBRILLATION
     Dosage: 7.5 QD W/ADDITIONAL 3.75 MG ON FRIDAY
     Dates: start: 20030301
  2. POTASSIUM CHLORIDE [Concomitant]
  3. FUROSEMIDE [Concomitant]
  4. OSCAL [Concomitant]
  5. GLYBURIDE [Concomitant]

REACTIONS (3)
  - CONTUSION [None]
  - HAEMORRHAGE [None]
  - LACERATION [None]
